FAERS Safety Report 9176929 (Version 1)
Quarter: 2013Q1

REPORT INFORMATION
  Report Type: Spontaneous
  Country: US (occurrence: US)
  Receive Date: 20130321
  Receipt Date: 20130321
  Transmission Date: 20140127
  Serious: Yes (Other)
  Sender: FDA-Public Use
  Company Number: US-JNJFOC-20130307108

PATIENT
  Age: 16 Year
  Sex: Female

DRUGS (9)
  1. DOXORUBICIN HYDROCHLORIDE [Suspect]
     Indication: NEOPLASM
     Route: 042
     Dates: start: 2010
  2. CISPLATIN [Suspect]
     Indication: NEOPLASM
     Route: 065
     Dates: start: 20100425
  3. IFOSFAMIDE [Suspect]
     Indication: NEOPLASM
     Route: 065
     Dates: start: 20100425
  4. VINCRISTINE [Suspect]
     Indication: NEOPLASM
     Route: 065
     Dates: start: 20100425
  5. TEMOZOLOMIDE [Suspect]
     Indication: NEOPLASM
     Route: 065
     Dates: start: 20100425
  6. CYCLOPHOSPHAMIDE [Suspect]
     Indication: NEOPLASM
     Route: 065
  7. IRINOTECAN [Suspect]
     Indication: NEOPLASM
     Route: 065
  8. GEMCITABINE [Suspect]
     Indication: NEOPLASM
     Route: 065
  9. DOCETAXEL [Suspect]
     Indication: NEOPLASM
     Route: 065

REACTIONS (4)
  - Pancytopenia [Unknown]
  - Nail discolouration [Recovered/Resolved]
  - Tongue pigmentation [Recovering/Resolving]
  - Off label use [Recovered/Resolved]
